FAERS Safety Report 7365541-6 (Version None)
Quarter: 2011Q1

REPORT INFORMATION
  Report Type: 
  Country: None (occurrence: None)
  Receive Date: 20110322
  Receipt Date: 20100817
  Transmission Date: 20110831
  Serious: Yes (Other)
  Sender: FDA-Public Use
  Company Number: US-BAYER-201028587NA

PATIENT
  Sex: Female
  Weight: 111.11 kg

DRUGS (4)
  1. YAZ [Suspect]
     Dosage: UNK
     Dates: start: 20010101
  2. YASMIN [Suspect]
     Indication: PRODUCT USED FOR UNKNOWN INDICATION
     Dosage: UNK UNK, UNK
     Route: 048
     Dates: start: 20010101
  3. ACETAMINOPHEN [Concomitant]
     Dosage: UNK UNK, PRN
  4. TORSEMIDE [Concomitant]
     Dosage: UNK
     Dates: start: 20090101, end: 20100101

REACTIONS (3)
  - GALLBLADDER DISORDER [None]
  - GALLBLADDER INJURY [None]
  - CHOLELITHIASIS [None]
